FAERS Safety Report 7232197 (Version 7)
Quarter: 2014Q4

REPORT INFORMATION
  Report Type: Spontaneous
  Country: FR (occurrence: FR)
  Receive Date: 20091229
  Receipt Date: 20141022
  Transmission Date: 20150529
  Serious: Yes (Death, Hospitalization)
  Sender: FDA-Public Use
  Company Number: FR-BIOGENIDEC-2009BI041146

PATIENT
  Age: 53 Year
  Sex: Female
  Weight: 70 kg

DRUGS (9)
  1. EDUCTYL [Concomitant]
     Active Substance: POTASSIUM BITARTRATE\SODIUM BICARBONATE
     Route: 054
  2. TYSABRI [Suspect]
     Active Substance: NATALIZUMAB
     Indication: MULTIPLE SCLEROSIS
     Route: 042
     Dates: start: 20080717, end: 20091202
  3. DEROXAT [Concomitant]
     Active Substance: PAROXETINE HYDROCHLORIDE
     Route: 048
  4. ATARAX [Concomitant]
     Active Substance: HYDROXYZINE\HYDROXYZINE HYDROCHLORIDE
     Route: 048
  5. RIVOTRIL [Concomitant]
     Active Substance: CLONAZEPAM
     Route: 048
  6. ALPRAZOLAM. [Concomitant]
     Active Substance: ALPRAZOLAM
     Route: 048
  7. XATRAL LP [Concomitant]
     Active Substance: ALFUZOSIN
     Route: 048
  8. URISPAS [Concomitant]
     Active Substance: FLAVOXATE HYDROCHLORIDE
     Route: 048
  9. DIANTALVIC [Concomitant]
     Route: 048

REACTIONS (5)
  - Sensory disturbance [Unknown]
  - Immune reconstitution inflammatory syndrome [Unknown]
  - Depression [Unknown]
  - Progressive multifocal leukoencephalopathy [Fatal]
  - Multiple sclerosis relapse [Unknown]

NARRATIVE: CASE EVENT DATE: 200807
